FAERS Safety Report 25430001 (Version 2)
Quarter: 2025Q2

REPORT INFORMATION
  Report Type: Spontaneous
  Country: US (occurrence: US)
  Receive Date: 20250612
  Receipt Date: 20250623
  Transmission Date: 20250717
  Serious: No
  Sender: BIOVITRUM
  Company Number: US-BIOVITRUM-2025-US-008142

PATIENT
  Age: 74 Year
  Sex: Female

DRUGS (1)
  1. VONJO [Suspect]
     Active Substance: PACRITINIB
     Indication: Myelofibrosis
     Route: 048
     Dates: start: 20250605

REACTIONS (7)
  - Nausea [Recovering/Resolving]
  - Intentional product misuse [Not Recovered/Not Resolved]
  - Dizziness [Recovering/Resolving]
  - White blood cell count increased [Unknown]
  - Platelet count increased [Unknown]
  - Red blood cell count abnormal [Unknown]
  - Aphasia [Recovering/Resolving]

NARRATIVE: CASE EVENT DATE: 20250605
